FAERS Safety Report 16419252 (Version 1)
Quarter: 2019Q2

REPORT INFORMATION
  Report Type: Spontaneous
  Country: IT (occurrence: IT)
  Receive Date: 20190612
  Receipt Date: 20190612
  Transmission Date: 20190711
  Serious: Yes (Other)
  Sender: FDA-Public Use
  Company Number: IT-ACCORD-132390

PATIENT
  Age: 50 Year
  Sex: Female

DRUGS (3)
  1. HERCEPTIN [Concomitant]
     Active Substance: TRASTUZUMAB
     Dosage: STRENGTH 150 MG,
     Route: 042
  2. PERJETA [Concomitant]
     Active Substance: PERTUZUMAB
     Dosage: STRENGTH 420 MG
     Route: 042
  3. DOCETAXEL ACCORD [Suspect]
     Active Substance: DOCETAXEL
     Indication: BREAST CANCER
     Dosage: STRENGTH 80 MG/4 ML
     Route: 042

REACTIONS (1)
  - Bone marrow toxicity [Unknown]
